FAERS Safety Report 21295806 (Version 1)
Quarter: 2022Q3

REPORT INFORMATION
  Report Type: Spontaneous
  Country: SA (occurrence: SA)
  Receive Date: 20220906
  Receipt Date: 20220906
  Transmission Date: 20221027
  Serious: Yes (Death)
  Sender: FDA-Public Use
  Company Number: SA-SUN PHARMACEUTICAL INDUSTRIES LTD-2022RR-353058

PATIENT
  Age: 43 Year
  Sex: Female

DRUGS (6)
  1. ATORVASTATIN [Suspect]
     Active Substance: ATORVASTATIN
     Indication: Glioblastoma
     Dosage: UNK
     Route: 065
     Dates: start: 201610, end: 201703
  2. TEMOZOLOMIDE [Suspect]
     Active Substance: TEMOZOLOMIDE
     Indication: Glioblastoma
     Dosage: UNK
     Route: 065
     Dates: start: 201610, end: 201703
  3. IRINOTECAN [Suspect]
     Active Substance: IRINOTECAN
     Indication: Glioblastoma
     Dosage: UNK
     Route: 065
     Dates: start: 201811
  4. CARBOPLATIN [Suspect]
     Active Substance: CARBOPLATIN
     Indication: Glioblastoma
     Dosage: UNK, 2 CYCLES
     Route: 065
  5. BEVACIZUMAB [Suspect]
     Active Substance: BEVACIZUMAB
     Indication: Glioblastoma
     Dosage: UNK
     Route: 065
     Dates: start: 201811
  6. ETOPOSIDE [Suspect]
     Active Substance: ETOPOSIDE
     Indication: Glioblastoma
     Dosage: UNK, 2 CYCLES
     Route: 065

REACTIONS (2)
  - Disease progression [Fatal]
  - Disease recurrence [Fatal]
